FAERS Safety Report 20980325 (Version 4)
Quarter: 2022Q3

REPORT INFORMATION
  Report Type: Spontaneous
  Country: JP (occurrence: JP)
  Receive Date: 20220620
  Receipt Date: 20220809
  Transmission Date: 20221027
  Serious: Yes (Other)
  Sender: FDA-Public Use
  Company Number: JP-BEH-2022146581

PATIENT
  Age: 53 Year
  Sex: Male
  Weight: 56.4 kg

DRUGS (4)
  1. ALBUMINAR-25 [Suspect]
     Active Substance: ALBUMIN HUMAN
     Indication: Hypoalbuminaemia
     Dosage: 2V, QD
     Route: 042
     Dates: start: 20211227, end: 20211229
  2. OMEPRAZOLE [Concomitant]
     Active Substance: OMEPRAZOLE
     Indication: Peptic ulcer
     Dosage: 20 MILLIGRAM, BID
     Route: 042
     Dates: start: 20211227, end: 20220102
  3. CEFMETAZOLE [Concomitant]
     Active Substance: CEFMETAZOLE
     Indication: Peritonitis
     Dosage: 1 GRAM, BID
     Route: 042
     Dates: start: 20211222, end: 20211231
  4. ALINAMIN-F ODORLES [Concomitant]
     Indication: Vitamin B1 deficiency
     Dosage: 50 MILLIGRAM, FREQUENCY: LASTS FOR 24 HOURS
     Route: 042
     Dates: start: 20211222, end: 20220103

REACTIONS (4)
  - Acute hepatitis C [Not Recovered/Not Resolved]
  - Hepatitis C antibody positive [Not Recovered/Not Resolved]
  - Hepatic function abnormal [Not Recovered/Not Resolved]
  - Suspected transmission of an infectious agent via product [Not Recovered/Not Resolved]

NARRATIVE: CASE EVENT DATE: 20220602
